FAERS Safety Report 25262131 (Version 1)
Quarter: 2025Q2

REPORT INFORMATION
  Report Type: Spontaneous
  Country: DE (occurrence: DE)
  Receive Date: 20250502
  Receipt Date: 20250502
  Transmission Date: 20250716
  Serious: Yes (Hospitalization, Other)
  Sender: ALKEM
  Company Number: None

PATIENT
  Age: 39 Year
  Sex: Male

DRUGS (3)
  1. GABAPENTIN [Suspect]
     Active Substance: GABAPENTIN
     Indication: Neuralgia
     Dosage: 500 MILLIGRAM, QD (EVERY 1 DAY)
     Route: 065
  2. DIPYRONE [Concomitant]
     Active Substance: DIPYRONE
     Indication: Product used for unknown indication
     Route: 065
  3. FERROUS GLYCINE SULFATE [Concomitant]
     Active Substance: FERROUS GLYCINE SULFATE
     Indication: Product used for unknown indication
     Route: 065

REACTIONS (7)
  - Gingival bleeding [Recovered/Resolved]
  - Mucosal haemorrhage [Recovered/Resolved]
  - Epistaxis [Recovered/Resolved]
  - Iron deficiency [Unknown]
  - Petechiae [Unknown]
  - Platelet aggregation abnormal [Recovered/Resolved]
  - Anal haemorrhage [Recovered/Resolved]
